FAERS Safety Report 20232954 (Version 4)
Quarter: 2024Q2

REPORT INFORMATION
  Report Type: Spontaneous
  Country: US (occurrence: US)
  Receive Date: 20211227
  Receipt Date: 20240415
  Transmission Date: 20240715
  Serious: Yes (Other)
  Sender: FDA-Public Use
  Company Number: US-JNJFOC-20211146522

PATIENT
  Sex: Female

DRUGS (7)
  1. ELMIRON [Suspect]
     Active Substance: PENTOSAN POLYSULFATE SODIUM
     Indication: Cystitis interstitial
     Route: 048
     Dates: start: 20050101, end: 20201218
  2. SULINDAC [Concomitant]
     Active Substance: SULINDAC
     Indication: Exostosis
     Dates: start: 20000101, end: 20210901
  3. DETROL [Concomitant]
     Active Substance: TOLTERODINE TARTRATE
     Indication: Incontinence
     Dates: start: 19950101, end: 20200101
  4. MACRODANTIN [Concomitant]
     Active Substance: NITROFURANTOIN
     Indication: Urinary tract infection
     Dates: start: 19980101, end: 20200101
  5. CALTRATE [Concomitant]
     Active Substance: CALCIUM CARBONATE
     Indication: Mineral supplementation
     Dates: start: 19980101, end: 20171230
  6. FLONASE [Concomitant]
     Active Substance: FLUTICASONE PROPIONATE
     Indication: Multiple allergies
     Dates: start: 19950101
  7. PYRIDIUM [Concomitant]
     Active Substance: PHENAZOPYRIDINE
     Indication: Pain
     Dates: start: 20000101, end: 20160927

REACTIONS (1)
  - Dry age-related macular degeneration [Not Recovered/Not Resolved]

NARRATIVE: CASE EVENT DATE: 20050101
